FAERS Safety Report 5916675-1 (Version None)
Quarter: 2008Q4

REPORT INFORMATION
  Report Type: 
  Country: None (occurrence: None)
  Receive Date: 20081013
  Receipt Date: 20080929
  Transmission Date: 20090506
  Serious: Yes (Hospitalization)
  Sender: FDA-Public Use
  Company Number: UA-AVENTIS-200819565GDDC

PATIENT
  Age: 46 Year
  Sex: Male
  Weight: 94 kg

DRUGS (5)
  1. GLIMEPIRIDE [Suspect]
     Dosage: DOSE: UNK
     Route: 048
     Dates: start: 20051208, end: 20071109
  2. METFOGAMMA [Concomitant]
  3. RENITEC                            /00574901/ [Concomitant]
     Dates: end: 20071108
  4. STAMLO                             /00972401/ [Concomitant]
     Dates: end: 20071108
  5. ARIFON [Concomitant]

REACTIONS (3)
  - ACUTE MYOCARDIAL INFARCTION [None]
  - BLOOD PRESSURE INCREASED [None]
  - CHEST PAIN [None]
